FAERS Safety Report 6738948-5 (Version None)
Quarter: 2010Q2

REPORT INFORMATION
  Report Type: 
  Country: None (occurrence: None)
  Receive Date: 20100521
  Receipt Date: 20100513
  Transmission Date: 20101027
  Serious: Yes (Death, Life-Threatening)
  Sender: FDA-Public Use
  Company Number: 2010EN000118

PATIENT
  Age: 7 Year

DRUGS (1)
  1. ADAGEN [Suspect]
     Indication: COMBINED IMMUNODEFICIENCY
     Dosage: 375 IU;BIW;IM
     Dates: start: 20030101, end: 20100317

REACTIONS (2)
  - PNEUMONIA PARAINFLUENZAE VIRAL [None]
  - RESPIRATORY DISTRESS [None]
